FAERS Safety Report 5874885-6 (Version None)
Quarter: 2008Q3

REPORT INFORMATION
  Report Type: 
  Country: None (occurrence: None)
  Receive Date: 20080904
  Receipt Date: 20080821
  Transmission Date: 20090109
  Serious: Yes (Hospitalization)
  Sender: FDA-Public Use
  Company Number: 2008SP016299

PATIENT
  Age: 25 Year
  Sex: Male

DRUGS (1)
  1. DESLORATADINE [Suspect]
     Indication: PRURITUS
     Dosage: 5 MG; QID; PO
     Route: 048

REACTIONS (1)
  - PARAESTHESIA [None]
